FAERS Safety Report 11699151 (Version 2)
Quarter: 2015Q4

REPORT INFORMATION
  Report Type: Spontaneous
  Country: TR (occurrence: TR)
  Receive Date: 20151104
  Receipt Date: 20151104
  Transmission Date: 20160304
  Serious: Yes (Other)
  Sender: FDA-Public Use
  Company Number: TR-ANTARES PHARMA, INC.-2015-LIT-ME-0078

PATIENT
  Age: 149 Month
  Sex: Male

DRUGS (1)
  1. METHOTREXATE [Suspect]
     Active Substance: METHOTREXATE
     Indication: ACUTE LYMPHOCYTIC LEUKAEMIA
     Route: 042

REACTIONS (6)
  - Seizure [None]
  - Loss of consciousness [None]
  - Encephalopathy [None]
  - Blindness [None]
  - Bone marrow transplant [None]
  - Cardiac disorder [None]
